FAERS Safety Report 10841280 (Version 1)
Quarter: 2015Q1

REPORT INFORMATION
  Report Type: Spontaneous
  Country: US (occurrence: US)
  Receive Date: 20150220
  Receipt Date: 20150220
  Transmission Date: 20150721
  Serious: Yes (Hospitalization)
  Sender: FDA-Public Use
  Company Number: US-ACCORD-028571

PATIENT
  Age: 14 Year
  Sex: Male

DRUGS (1)
  1. METHOTREXATE [Suspect]
     Active Substance: METHOTREXATE
     Indication: ACUTE LYMPHOCYTIC LEUKAEMIA
     Dosage: 2 DOSES OF 15 MG/DOSE
     Route: 037

REACTIONS (7)
  - Neurotoxicity [Unknown]
  - Hyperhidrosis [Unknown]
  - Hemiparesis [Unknown]
  - VIIth nerve paralysis [Unknown]
  - Aphasia [Unknown]
  - Mental status changes [Unknown]
  - Asthenia [Unknown]
